FAERS Safety Report 7110223-9 (Version None)
Quarter: 2010Q4

REPORT INFORMATION
  Report Type: 
  Country: None (occurrence: None)
  Receive Date: 20101117
  Receipt Date: 20101117
  Transmission Date: 20110411
  Serious: Yes (Other)
  Sender: FDA-Public Use
  Company Number: None

PATIENT
  Sex: Male
  Weight: 137.8935 kg

DRUGS (2)
  1. ATENOLOL [Suspect]
     Indication: ANGINA UNSTABLE
     Dosage: 25 MG 25 MG QAM 1.25 MG Q PM PO
     Route: 048
     Dates: start: 20101013
  2. ATENOLOL [Suspect]
     Indication: ARTERIOSCLEROSIS CORONARY ARTERY
     Dosage: 25 MG 25 MG QAM 1.25 MG Q PM PO
     Route: 048
     Dates: start: 20101013

REACTIONS (4)
  - ACTIVITIES OF DAILY LIVING IMPAIRED [None]
  - CHEST DISCOMFORT [None]
  - DYSPNOEA [None]
  - PRODUCT SUBSTITUTION ISSUE [None]
